FAERS Safety Report 25743056 (Version 1)
Quarter: 2025Q3

REPORT INFORMATION
  Report Type: Spontaneous
  Country: US (occurrence: US)
  Receive Date: 20250830
  Receipt Date: 20250830
  Transmission Date: 20251021
  Serious: Yes (Other)
  Sender: ALEXION PHARMACEUTICALS
  Company Number: US-AstraZeneca-CH-00937314A

PATIENT
  Sex: Female

DRUGS (1)
  1. TAGRISSO [Suspect]
     Active Substance: OSIMERTINIB
     Route: 065

REACTIONS (8)
  - Diarrhoea [Unknown]
  - Constipation [Unknown]
  - Metastases to central nervous system [Unknown]
  - Gait disturbance [Unknown]
  - Nail discolouration [Unknown]
  - Onychoclasis [Unknown]
  - Nail disorder [Unknown]
  - Nail growth abnormal [Unknown]
